FAERS Safety Report 24791425 (Version 1)
Quarter: 2024Q4

REPORT INFORMATION
  Report Type: Spontaneous
  Country: JP (occurrence: JP)
  Receive Date: 20241231
  Receipt Date: 20241231
  Transmission Date: 20250115
  Serious: Yes (Hospitalization)
  Sender: AMGEN
  Company Number: None

PATIENT

DRUGS (1)
  1. IVABRADINE HYDROCHLORIDE [Suspect]
     Active Substance: IVABRADINE HYDROCHLORIDE
     Indication: Cardiac failure chronic
     Dosage: 2.5 MILLIGRAM, QD
     Route: 048
     Dates: start: 202412

REACTIONS (2)
  - Coronavirus infection [Recovering/Resolving]
  - Prescribed underdose [Recovered/Resolved]

NARRATIVE: CASE EVENT DATE: 20241201
